FAERS Safety Report 6769229-1 (Version None)
Quarter: 2010Q2

REPORT INFORMATION
  Report Type: 
  Country: None (occurrence: None)
  Receive Date: 20100607
  Receipt Date: 20100525
  Transmission Date: 20101027
  Serious: Yes (Death)
  Sender: FDA-Public Use
  Company Number: B0658627A

PATIENT

DRUGS (8)
  1. ETOPOSIDE        (FORMULATION UKNOWN) (GENERIC) (ETOPOSIDE) [Suspect]
     Indication: CENTRAL NERVOUS SYSTEM LYMPHOMA
     Dosage: 125 MG/M2 / CYCLIC / INTRAVENOUS
  2. METHOTREXATE [Suspect]
     Indication: CENTRAL NERVOUS SYSTEM LYMPHOMA
     Dosage: 1.5 G/M2 / CYCLIC / INTRAVENOUS
     Route: 042
  3. CYCLOPHOSPHAMIDE [Suspect]
     Indication: CENTRAL NERVOUS SYSTEM LYMPHOMA
     Dosage: 750 MG/M2 / CYCLIC / INTRAVENOUS
     Route: 042
  4. CYTARABINE (FORMULATIOPN UNKNOWN) (CYTARABINE) [Suspect]
     Indication: CENTRAL NERVOUS SYSTEM LYMPHOMA
     Dosage: 30 MG / CYCLIC / INTRAVENOUS
     Route: 042
  5. HYDROCORTISONE (FORMULATION UNKNWON) (HYDROCORTISONE) [Suspect]
     Indication: CENTRAL NERVOUS SYSTEM LYMPHOMA
     Dosage: 15 MG / CYCLIC / INTRATEHCAL
     Route: 037
  6. METHYLPREDNISOLONE [Suspect]
     Indication: CENTRAL NERVOUS SYSTEM LYMPHOMA
     Dosage: 1 MG/KG / CYCLIC / INTRAVENOUS
     Route: 042
  7. CALCIUM FOLINATE [Concomitant]
  8. GRANULOCYTE COL. STIM. FACT [Concomitant]

REACTIONS (1)
  - CARDIAC DISORDER [None]
